FAERS Safety Report 7040211-2 (Version None)
Quarter: 2010Q3

REPORT INFORMATION
  Report Type: 
  Country: None (occurrence: None)
  Receive Date: 20100929
  Receipt Date: 20100603
  Transmission Date: 20110219
  Serious: Yes (Other)
  Sender: FDA-Public Use
  Company Number: US-WYE-H14929410

PATIENT
  Age: 61 Year
  Sex: Female
  Weight: 113.5 kg

DRUGS (2)
  1. PRISTIQ [Suspect]
     Indication: DEPRESSION
     Dosage: 50 MG 1X PER 1 DAY, ORAL
     Route: 048
     Dates: start: 20080101
  2. METHOTREXATE [Concomitant]

REACTIONS (6)
  - ANXIETY [None]
  - DRUG INEFFECTIVE [None]
  - EXPIRED DRUG ADMINISTERED [None]
  - MANIA [None]
  - PANIC REACTION [None]
  - TEARFULNESS [None]
